FAERS Safety Report 24758241 (Version 1)
Quarter: 2024Q4

REPORT INFORMATION
  Report Type: Spontaneous
  Country: US (occurrence: US)
  Receive Date: 20241220
  Receipt Date: 20241220
  Transmission Date: 20250115
  Serious: No
  Sender: UCB
  Company Number: US-UCBSA-2024057058

PATIENT
  Sex: Male
  Weight: 110.64 kg

DRUGS (1)
  1. BIMZELX [Suspect]
     Active Substance: BIMEKIZUMAB-BKZX
     Indication: Psoriasis
     Dosage: 320 MILLIGRAM PER MILLILITRE, EV 4 WEEKS
     Route: 058

REACTIONS (3)
  - Back pain [Unknown]
  - Fatigue [Unknown]
  - Psoriasis [Unknown]
